FAERS Safety Report 6826966-8 (Version None)
Quarter: 2010Q3

REPORT INFORMATION
  Report Type: 
  Country: None (occurrence: None)
  Receive Date: 20100709
  Receipt Date: 20100609
  Transmission Date: 20110219
  Serious: Yes (Other)
  Sender: FDA-Public Use
  Company Number: PHHY2009BR43688

PATIENT
  Sex: Female
  Weight: 87 kg

DRUGS (4)
  1. DIOVAN HCT [Suspect]
     Indication: HYPERTENSION
     Dosage: 1 TABLET (160/12.5 MG) DAILY IN MORNING
  2. DIOVAN HCT [Suspect]
     Dosage: 320/12.5 MG
  3. DIOVAN [Suspect]
     Indication: HYPERTENSION
     Dosage: 160 MG AT NIGHT
  4. LEVOTHYROXINE SODIUM [Concomitant]
     Indication: HYPOTHYROIDISM
     Dosage: 1 TABLLET DAILY IN MORNING
     Route: 048

REACTIONS (10)
  - ABDOMINAL DISTENSION [None]
  - ABDOMINAL PAIN [None]
  - BLOOD CHOLESTEROL INCREASED [None]
  - BLOOD PRESSURE INADEQUATELY CONTROLLED [None]
  - BLOOD TRIGLYCERIDES INCREASED [None]
  - BLOOD URIC ACID INCREASED [None]
  - DYSPHONIA [None]
  - HYPERSENSITIVITY [None]
  - SYSTEMIC LUPUS ERYTHEMATOSUS [None]
  - VISION BLURRED [None]
